FAERS Safety Report 5000893-3 (Version None)
Quarter: 2006Q2

REPORT INFORMATION
  Report Type: 
  Country: None (occurrence: None)
  Receive Date: 20060512
  Receipt Date: 20051018
  Transmission Date: 20061013
  Serious: No
  Sender: FDA-Public Use
  Company Number: US-GLAXOSMITHKLINE-A0578645A

PATIENT
  Sex: Female

DRUGS (1)
  1. RELAFEN [Suspect]
     Indication: OSTEOARTHRITIS
     Dosage: 750MG TWICE PER DAY
     Route: 048
     Dates: start: 20000101

REACTIONS (1)
  - MOUTH ULCERATION [None]
